FAERS Safety Report 7465657-X (Version None)
Quarter: 2011Q2

REPORT INFORMATION
  Report Type: 
  Country: None (occurrence: None)
  Receive Date: 20110509
  Receipt Date: 20110502
  Transmission Date: 20111010
  Serious: Yes (Hospitalization)
  Sender: FDA-Public Use
  Company Number: A0924213A

PATIENT
  Age: 82 Year
  Sex: Female

DRUGS (7)
  1. DIGOXIN [Concomitant]
  2. FLOVENT [Suspect]
     Indication: ASTHMA
     Dosage: 1PUFF TWICE PER DAY
     Route: 055
     Dates: start: 20110401
  3. ALBUTEROL [Suspect]
     Indication: DYSPNOEA
     Route: 042
     Dates: start: 20110101
  4. ACCUPRIL [Concomitant]
  5. LIPITOR [Concomitant]
  6. CATAPRES [Concomitant]
  7. CARTIA XT [Concomitant]

REACTIONS (13)
  - DYSPHONIA [None]
  - DYSKINESIA [None]
  - ADVERSE DRUG REACTION [None]
  - DRY MOUTH [None]
  - BLOOD PRESSURE FLUCTUATION [None]
  - DRUG INEFFECTIVE [None]
  - ASTHENIA [None]
  - HEART RATE IRREGULAR [None]
  - OVERDOSE [None]
  - DYSPNOEA [None]
  - CARDIAC DISORDER [None]
  - NASAL DRYNESS [None]
  - DRY THROAT [None]
